FAERS Safety Report 10545176 (Version 3)
Quarter: 2014Q4

REPORT INFORMATION
  Report Type: Report from Study
  Country: US (occurrence: US)
  Receive Date: 20141027
  Receipt Date: 20141226
  Transmission Date: 20150529
  Serious: Yes (Death, Hospitalization)
  Sender: FDA-Public Use
  Company Number: PHEH2014US020659

PATIENT
  Age: 49 Year
  Sex: Male

DRUGS (2)
  1. TOBI [Suspect]
     Active Substance: TOBRAMYCIN
     Indication: CYSTIC FIBROSIS
     Dosage: 300 MG, BID, PER 5 ML
     Route: 055
  2. TOBI PODHALER [Suspect]
     Active Substance: TOBRAMYCIN
     Indication: CYSTIC FIBROSIS
     Dosage: 112 MG, BID
     Route: 055
     Dates: start: 201307

REACTIONS (4)
  - Condition aggravated [Unknown]
  - Lung infection [Not Recovered/Not Resolved]
  - Cystic fibrosis [Unknown]
  - Death [Fatal]

NARRATIVE: CASE EVENT DATE: 20140826
